FAERS Safety Report 17259416 (Version 2)
Quarter: 2020Q2

REPORT INFORMATION
  Report Type: Spontaneous
  Country: AT (occurrence: AT)
  Receive Date: 20200110
  Receipt Date: 20200508
  Transmission Date: 20200713
  Serious: Yes (Other)
  Sender: FDA-Public Use
  Company Number: AT-ANIPHARMA-2020-AT-000001

PATIENT
  Sex: Female

DRUGS (6)
  1. ASA [Suspect]
     Active Substance: ASPIRIN
     Dosage: UNK
     Route: 065
  2. CANDESARTAN. [Suspect]
     Active Substance: CANDESARTAN
     Indication: PRODUCT USED FOR UNKNOWN INDICATION
     Dosage: UNK
     Route: 048
  3. MAGNESIUM [Concomitant]
     Active Substance: MAGNESIUM
     Dosage: UNK
     Route: 065
  4. EZETIMIBE. [Suspect]
     Active Substance: EZETIMIBE
     Dosage: UNK
     Route: 065
  5. AMLODIPIN [Suspect]
     Active Substance: AMLODIPINE BESYLATE
     Dosage: UNK
     Route: 065
  6. ROSUVASTATIN. [Suspect]
     Active Substance: ROSUVASTATIN
     Dosage: 40 MG UNK / 40 MG UNK
     Route: 048

REACTIONS (3)
  - Peripheral arterial occlusive disease [Unknown]
  - Pain in extremity [Unknown]
  - Muscle spasms [Unknown]
